FAERS Safety Report 21776675 (Version 1)
Quarter: 2022Q4

REPORT INFORMATION
  Report Type: Spontaneous
  Country: GB (occurrence: GB)
  Receive Date: 20221226
  Receipt Date: 20221226
  Transmission Date: 20230113
  Serious: Yes (Other)
  Sender: FDA-Public Use
  Company Number: GB-SUN PHARMACEUTICAL INDUSTRIES LTD-2022RR-370061

PATIENT
  Age: 40 Year
  Sex: Female

DRUGS (3)
  1. ARIPIPRAZOLE [Suspect]
     Active Substance: ARIPIPRAZOLE
     Indication: Delusional disorder, unspecified type
     Dosage: 30 MILLIGRAM
     Route: 065
     Dates: start: 201908, end: 201911
  2. RISPERIDONE [Suspect]
     Active Substance: RISPERIDONE
     Indication: Delusional disorder, unspecified type
     Dosage: 2 MILLIGRAM, BID
     Route: 065
  3. HALOPERIDOL [Concomitant]
     Active Substance: HALOPERIDOL
     Indication: Delusional disorder, persecutory type
     Dosage: UNK
     Route: 065
     Dates: start: 20210723

REACTIONS (8)
  - Drug ineffective [Unknown]
  - Fatigue [Unknown]
  - Tremor [Unknown]
  - Social avoidant behaviour [Unknown]
  - Delusion [Unknown]
  - Hyperprolactinaemia [Unknown]
  - Blood thyroid stimulating hormone increased [Unknown]
  - Disease progression [Unknown]
